FAERS Safety Report 10017354 (Version 2)
Quarter: 2014Q1

REPORT INFORMATION
  Report Type: Spontaneous
  Country: BR (occurrence: BR)
  Receive Date: 20140318
  Receipt Date: 20140331
  Transmission Date: 20141002
  Serious: Yes (Other)
  Sender: FDA-Public Use
  Company Number: BR-VERTEX PHARMACEUTICALS INC-2014-001323

PATIENT
  Age: 53 Year
  Sex: Male
  Weight: 76 kg

DRUGS (7)
  1. INCIVO [Suspect]
     Indication: HEPATITIS C
     Dosage: UNK
     Route: 065
     Dates: start: 20140219
  2. PEG INTERFERON [Concomitant]
     Indication: HEPATITIS C
     Dosage: DOSAGE FORM: UNKNOWN
     Route: 065
  3. PEG INTERFERON [Concomitant]
     Dosage: DOSAGE FORM: UNKNOWN
     Route: 065
     Dates: start: 20140219
  4. RIBAVIRIN [Concomitant]
     Indication: HEPATITIS C
     Dosage: UNK
     Route: 065
  5. RIBAVIRIN [Concomitant]
     Dosage: DOSAGE FORM: UNKNOWN
     Route: 065
     Dates: start: 20140219
  6. DOSTINEX [Concomitant]
     Indication: PITUITARY TUMOUR BENIGN
     Dosage: DOSAGE FORM: UNKNOWN
     Route: 065
  7. LOSARTAN [Suspect]
     Indication: PRODUCT USED FOR UNKNOWN INDICATION
     Dosage: DOSAGE FORM: UNKNOWN
     Route: 065
     Dates: start: 20140324

REACTIONS (8)
  - Blood pressure fluctuation [Not Recovered/Not Resolved]
  - Arrhythmia [Not Recovered/Not Resolved]
  - Anxiety [Not Recovered/Not Resolved]
  - Tachycardia [Not Recovered/Not Resolved]
  - Skin disorder [Not Recovered/Not Resolved]
  - Muscular weakness [Not Recovered/Not Resolved]
  - Abdominal pain upper [Not Recovered/Not Resolved]
  - Malaise [Not Recovered/Not Resolved]
